FAERS Safety Report 12644562 (Version 2)
Quarter: 2016Q3

REPORT INFORMATION
  Report Type: Spontaneous
  Country: AU (occurrence: AU)
  Receive Date: 20160811
  Receipt Date: 20160817
  Transmission Date: 20161109
  Serious: Yes (Other)
  Sender: FDA-Public Use
  Company Number: AU-TEVA-683268ISR

PATIENT
  Age: 53 Year
  Sex: Male

DRUGS (8)
  1. RAMIPRIL. [Suspect]
     Active Substance: RAMIPRIL
  2. 500 MG PARACETAMOL/9.5 MG CODEINE/5 MG PHENYLEPHRINE [Suspect]
     Active Substance: ACETAMINOPHEN\CODEINE\PHENYLEPHRINE
  3. PHENYLEPHRIN [Suspect]
     Active Substance: PHENYLEPHRINE HYDROCHLORIDE
     Dosage: 20 MILLIGRAM DAILY;
  4. BISOPROLOL [Suspect]
     Active Substance: BISOPROLOL
  5. COLCHICINE. [Suspect]
     Active Substance: COLCHICINE
  6. APIXABAN [Suspect]
     Active Substance: APIXABAN
  7. ATORVASTATIN [Suspect]
     Active Substance: ATORVASTATIN
  8. MAGNESIUM [Suspect]
     Active Substance: MAGNESIUM

REACTIONS (3)
  - Poisoning deliberate [Recovered/Resolved]
  - Overdose [Recovered/Resolved]
  - Hypotension [Recovered/Resolved]
